FAERS Safety Report 25199721 (Version 1)
Quarter: 2025Q2

REPORT INFORMATION
  Report Type: Spontaneous
  Country: US (occurrence: None)
  Receive Date: 20250415
  Receipt Date: 20250415
  Transmission Date: 20250717
  Serious: Yes (Life-Threatening, Hospitalization, Disabling, Congenital Anomaly)
  Sender: FDA-CTU
  Company Number: None

PATIENT
  Age: 58 Year
  Sex: Male

DRUGS (2)
  1. ALENDRONATE SODIUM [Suspect]
     Active Substance: ALENDRONATE SODIUM
  2. PROLIA [Suspect]
     Active Substance: DENOSUMAB

REACTIONS (17)
  - Myalgia [None]
  - Bone pain [None]
  - Arthralgia [None]
  - Muscle spasms [None]
  - Confusional state [None]
  - Paraesthesia [None]
  - Hypoaesthesia [None]
  - Hypoaesthesia [None]
  - Abdominal pain upper [None]
  - Renal failure [None]
  - Bone pain [None]
  - Chest pain [None]
  - Lip exfoliation [None]
  - Anaemia [None]
  - Oral candidiasis [None]
  - Blister [None]
  - Ulcer [None]
